FAERS Safety Report 13510574 (Version 2)
Quarter: 2017Q3

REPORT INFORMATION
  Report Type: Report from Study
  Country: NL (occurrence: NL)
  Receive Date: 20170503
  Receipt Date: 20170907
  Transmission Date: 20171127
  Serious: Yes (Other)
  Sender: FDA-Public Use
  Company Number: NL-ASTRAZENECA-2017SE43599

PATIENT
  Age: 70 Year
  Sex: Male
  Weight: 93.7 kg

DRUGS (18)
  1. MEDI0562 [Suspect]
     Active Substance: TAVOLIXIZUMAB
     Indication: NEOPLASM MALIGNANT
     Route: 042
     Dates: start: 20170620, end: 20170620
  2. MEDI4736 [Suspect]
     Active Substance: DURVALUMAB
     Indication: NEOPLASM MALIGNANT
     Route: 042
     Dates: start: 20170523, end: 20170523
  3. MEDI0562 [Suspect]
     Active Substance: TAVOLIXIZUMAB
     Indication: NEOPLASM MALIGNANT
     Route: 042
     Dates: start: 20170425, end: 20170425
  4. MEDI0562 [Suspect]
     Active Substance: TAVOLIXIZUMAB
     Indication: NEOPLASM MALIGNANT
     Route: 042
     Dates: start: 20170606, end: 20170606
  5. MEDI4736 [Suspect]
     Active Substance: DURVALUMAB
     Indication: NEOPLASM MALIGNANT
     Route: 042
     Dates: start: 20170328, end: 20170328
  6. ISOSORBIDE DINITRATE. [Concomitant]
     Active Substance: ISOSORBIDE DINITRATE
     Indication: ANGINA PECTORIS
     Route: 060
     Dates: start: 20161007
  7. MEDI0562 [Suspect]
     Active Substance: TAVOLIXIZUMAB
     Indication: NEOPLASM MALIGNANT
     Route: 042
     Dates: start: 20170411, end: 20170411
  8. MEDI4736 [Suspect]
     Active Substance: DURVALUMAB
     Indication: NEOPLASM MALIGNANT
     Route: 042
     Dates: start: 20170425, end: 20170425
  9. PARACETAMOL [Concomitant]
     Active Substance: ACETAMINOPHEN
     Indication: ARTHRITIS
     Route: 048
     Dates: start: 20170328
  10. MEDI0562 [Suspect]
     Active Substance: TAVOLIXIZUMAB
     Indication: NEOPLASM MALIGNANT
     Route: 042
     Dates: start: 20170704, end: 20170704
  11. SIMVASTATIN. [Concomitant]
     Active Substance: SIMVASTATIN
     Indication: PROPHYLAXIS
     Route: 048
     Dates: start: 20161007
  12. LOSARTAN. [Concomitant]
     Active Substance: LOSARTAN
     Indication: HYPERTENSION
     Route: 048
     Dates: start: 20161007
  13. MEDI4736 [Suspect]
     Active Substance: DURVALUMAB
     Indication: NEOPLASM MALIGNANT
     Route: 042
     Dates: start: 20170620, end: 20170620
  14. MEDI0562 [Suspect]
     Active Substance: TAVOLIXIZUMAB
     Indication: NEOPLASM MALIGNANT
     Route: 042
     Dates: start: 20170509, end: 20170509
  15. MEDI0562 [Suspect]
     Active Substance: TAVOLIXIZUMAB
     Indication: NEOPLASM MALIGNANT
     Route: 042
     Dates: start: 20170523, end: 20170523
  16. BISOPROLOL [Concomitant]
     Active Substance: BISOPROLOL
     Indication: HYPERTENSION
     Route: 048
     Dates: start: 20161007
  17. MEDI0562 [Suspect]
     Active Substance: TAVOLIXIZUMAB
     Indication: NEOPLASM MALIGNANT
     Route: 042
     Dates: start: 20170328, end: 20170328
  18. CARBASALATE CALCIUM [Concomitant]
     Active Substance: CARBASPIRIN
     Indication: THROMBOSIS PROPHYLAXIS
     Route: 048
     Dates: start: 20161007

REACTIONS (1)
  - Infusion related reaction [Recovered/Resolved]

NARRATIVE: CASE EVENT DATE: 20170425
